FAERS Safety Report 7112916-6 (Version None)
Quarter: 2010Q4

REPORT INFORMATION
  Report Type: 
  Country: None (occurrence: None)
  Receive Date: 20101119
  Receipt Date: 20100731
  Transmission Date: 20110411
  Serious: No
  Sender: FDA-Public Use
  Company Number: US-BRISTOL-MYERS SQUIBB COMPANY-15202419

PATIENT
  Age: 79 Year
  Sex: Female

DRUGS (8)
  1. AVALIDE [Suspect]
     Indication: HYPERTENSION
     Dosage: 1DF=300/25 COUPLE YEARS AGO AND SWITCHED TO 300/12.5 DAILY IN APR2010
     Route: 048
  2. ACTONEL [Suspect]
     Indication: OSTEOPOROSIS
     Dates: start: 20070101
  3. COREG [Suspect]
  4. SYNTHROID [Concomitant]
     Dosage: EVERY MORNING
  5. CARDIZEM [Concomitant]
     Dosage: AT BED TIME
  6. CALTRATE [Concomitant]
     Dosage: 1DF=2TABS
  7. CENTRUM [Concomitant]
     Dosage: 1DF=1TAB
  8. GLUCOSAMINE SULFATE [Concomitant]
     Dosage: 1DF=1TAB

REACTIONS (2)
  - DYSGEUSIA [None]
  - NAUSEA [None]
